FAERS Safety Report 4756477-5 (Version None)
Quarter: 2005Q3

REPORT INFORMATION
  Report Type: 
  Country: None (occurrence: None)
  Receive Date: 20050830
  Receipt Date: 20050708
  Transmission Date: 20060218
  Serious: No
  Sender: FDA-Public Use
  Company Number: US-GLAXOSMITHKLINE-A0565573A

PATIENT
  Age: 46 Year
  Sex: Female

DRUGS (2)
  1. WELLBUTRIN XL [Suspect]
     Indication: DEPRESSION
     Dosage: 300MG PER DAY
     Route: 048
     Dates: start: 20050703
  2. CELEBREX [Concomitant]

REACTIONS (3)
  - INSOMNIA [None]
  - SPEECH DISORDER [None]
  - TINNITUS [None]
